FAERS Safety Report 5807480-5 (Version None)
Quarter: 2008Q3

REPORT INFORMATION
  Report Type: 
  Country: None (occurrence: None)
  Receive Date: 20080711
  Receipt Date: 20030116
  Transmission Date: 20090109
  Serious: Yes (Other)
  Sender: FDA-Public Use
  Company Number: JP-BAXTER-2008BH006124

PATIENT
  Age: 60 Year
  Sex: Female

DRUGS (1)
  1. PROPLEX T [Suspect]
     Indication: FACTOR X DEFICIENCY
     Route: 065
     Dates: start: 20020701

REACTIONS (3)
  - POISONING [None]
  - PULMONARY OEDEMA [None]
  - RESPIRATORY DISTRESS [None]
